FAERS Safety Report 7792190-8 (Version None)
Quarter: 2011Q4

REPORT INFORMATION
  Report Type: 
  Country: None (occurrence: None)
  Receive Date: 20111003
  Receipt Date: 20111003
  Transmission Date: 20120403
  Serious: Yes (Hospitalization)
  Sender: FDA-Public Use
  Company Number: None

PATIENT
  Age: 73 Year
  Sex: Female
  Weight: 66.678 kg

DRUGS (1)
  1. SINGULAIR [Suspect]
     Indication: SINUSITIS
     Dosage: ONCE
     Route: 048
     Dates: start: 20110904, end: 20110918

REACTIONS (4)
  - AMNESIA [None]
  - LOSS OF CONSCIOUSNESS [None]
  - TRANSIENT ISCHAEMIC ATTACK [None]
  - ACCIDENT [None]
